FAERS Safety Report 9433747 (Version 1)
Quarter: 2013Q3

REPORT INFORMATION
  Report Type: Spontaneous
  Country: US (occurrence: None)
  Receive Date: 20130729
  Receipt Date: 20130729
  Transmission Date: 20140515
  Serious: Yes (Hospitalization)
  Sender: FDA-Public Use
  Company Number: FK201302735

PATIENT
  Age: 72 Year
  Sex: Female

DRUGS (4)
  1. FLUOROURACIL (MANUFACTURER UNKNOWN) (FLUOROURACIL) (FLUOROURACIL) [Suspect]
     Indication: PANCREATIC CARCINOMA
  2. LEUCOVORIN CALCIUM [Suspect]
     Indication: PANCREATIC CARCINOMA
  3. IRINOTECAN [Suspect]
     Indication: PANCREATIC CARCINOMA
  4. OXALIPLATIN (OXALIPLATIN) [Suspect]
     Indication: PANCREATIC CARCINOMA

REACTIONS (7)
  - Myelodysplastic syndrome [None]
  - Peripheral sensory neuropathy [None]
  - Herpes zoster [None]
  - Thrombocytopenia [None]
  - Anaemia [None]
  - Diarrhoea [None]
  - Nausea [None]
